FAERS Safety Report 8962559 (Version 1)
Quarter: 2012Q4

REPORT INFORMATION
  Report Type: Spontaneous
  Country: US (occurrence: None)
  Receive Date: 20121211
  Receipt Date: 20121211
  Transmission Date: 20130627
  Serious: Yes (Other)
  Sender: FDA-Public Use
  Company Number: None

PATIENT
  Age: 86 Year
  Sex: Female
  Weight: 68.04 kg

DRUGS (2)
  1. AMLODIPINE [Suspect]
     Indication: HEART DISORDER
     Dates: start: 20120922, end: 20120925
  2. CIPROFLOXACIN [Suspect]
     Indication: URINARY TRACT INFECTION
     Route: 048
     Dates: start: 20120922, end: 20120925

REACTIONS (9)
  - Pain [None]
  - Oedema peripheral [None]
  - Oedema peripheral [None]
  - Haemorrhage [None]
  - Skin discolouration [None]
  - Nausea [None]
  - Erythema [None]
  - Erythema [None]
  - Feeling hot [None]
